FAERS Safety Report 10998012 (Version 2)
Quarter: 2015Q2

REPORT INFORMATION
  Report Type: Spontaneous
  Country: FR (occurrence: FR)
  Receive Date: 20150408
  Receipt Date: 20150526
  Transmission Date: 20150821
  Serious: Yes (Hospitalization, Other)
  Sender: FDA-Public Use
  Company Number: FR-PFIZER INC-2015114740

PATIENT
  Age: 52 Year
  Sex: Female

DRUGS (8)
  1. EFFEXOR [Concomitant]
     Active Substance: VENLAFAXINE HYDROCHLORIDE
     Indication: MENTAL DISORDER
     Dosage: UNK
     Dates: end: 20150316
  2. DEROXAT [Concomitant]
     Active Substance: PAROXETINE HYDROCHLORIDE
     Indication: MENTAL DISORDER
     Dosage: UNK
     Dates: end: 20150316
  3. KARDEGIC [Concomitant]
     Active Substance: ASPIRIN LYSINE
     Dosage: UNK
     Dates: end: 20150316
  4. DOSTINEX [Suspect]
     Active Substance: CABERGOLINE
     Indication: PITUITARY TUMOUR BENIGN
     Dosage: 3 DF, WEEKLY
     Route: 048
     Dates: start: 2005, end: 20150211
  5. IXEL [Concomitant]
     Active Substance: MILNACIPRAN HYDROCHLORIDE
     Indication: MENTAL DISORDER
     Dosage: UNK
     Dates: end: 20150316
  6. LEVOTHYROX [Concomitant]
     Active Substance: LEVOTHYROXINE
     Dosage: 112.5 ?G, 1X/DAY
     Route: 048
     Dates: end: 20150316
  7. DOSTINEX [Suspect]
     Active Substance: CABERGOLINE
     Dosage: 2 DF, WEEKLY
     Route: 048
     Dates: start: 20150212, end: 20150223
  8. SEROPLEX [Concomitant]
     Active Substance: ESCITALOPRAM OXALATE
     Indication: MENTAL DISORDER
     Dosage: UNK
     Dates: end: 20150316

REACTIONS (8)
  - Confusional state [Unknown]
  - Cognitive disorder [Unknown]
  - Condition aggravated [Unknown]
  - Mania [Not Recovered/Not Resolved]
  - Hyperventilation [Unknown]
  - Electroencephalogram abnormal [Not Recovered/Not Resolved]
  - Mental disorder [Unknown]
  - Epilepsy [Unknown]

NARRATIVE: CASE EVENT DATE: 201412
